FAERS Safety Report 23205950 (Version 1)
Quarter: 2023Q4

REPORT INFORMATION
  Report Type: Spontaneous
  Country: CN (occurrence: CN)
  Receive Date: 20231120
  Receipt Date: 20231120
  Transmission Date: 20240109
  Serious: Yes (Other)
  Sender: FDA-Public Use
  Company Number: CN-009507513-2311CHN005574

PATIENT
  Age: 60 Year
  Sex: Male
  Weight: 66.8 kg

DRUGS (5)
  1. CILASTATIN SODIUM\IMIPENEM [Suspect]
     Active Substance: CILASTATIN SODIUM\IMIPENEM
     Indication: Infection
     Dosage: 1 G, QID
     Route: 041
     Dates: start: 20231011, end: 20231015
  2. VFEND [Suspect]
     Active Substance: VORICONAZOLE
     Indication: Infection
     Dosage: 360 MG, BID
     Route: 041
     Dates: start: 20231013, end: 20231014
  3. VFEND [Suspect]
     Active Substance: VORICONAZOLE
     Dosage: 200 MG, BID
     Route: 041
     Dates: start: 20231014, end: 20231016
  4. CEFOPERAZONE SODIUM\SULBACTAM SODIUM [Concomitant]
     Active Substance: CEFOPERAZONE SODIUM\SULBACTAM SODIUM
     Indication: Infection
     Dosage: 3 G, TID
     Route: 041
     Dates: start: 20231014, end: 20231020
  5. GANCICLOVIR [Concomitant]
     Active Substance: GANCICLOVIR
     Indication: Infection
     Dosage: 0.3 G, BID
     Route: 041
     Dates: start: 20231013, end: 20231017

REACTIONS (2)
  - Delirium [Recovering/Resolving]
  - Hallucination, visual [Recovering/Resolving]

NARRATIVE: CASE EVENT DATE: 20231015
